FAERS Safety Report 9064645 (Version 1)
Quarter: 2013Q1

REPORT INFORMATION
  Report Type: Report from Study
  Country: US (occurrence: US)
  Receive Date: 20130128
  Receipt Date: 20130128
  Transmission Date: 20140127
  Serious: No
  Sender: FDA-Public Use
  Company Number: US-ABBOTT-12P-163-0899501-00

PATIENT
  Age: 51 Year
  Sex: Male

DRUGS (7)
  1. HUMIRA 40 MG/0.8 ML PEN [Suspect]
     Indication: PSORIASIS
     Dates: start: 200601
  2. TRAMADOL [Concomitant]
     Indication: BACK PAIN
     Dates: start: 201111
  3. DILTIAZEM [Concomitant]
     Indication: HYPERTENSION
  4. LISINOPRIL [Concomitant]
     Indication: PRODUCT USED FOR UNKNOWN INDICATION
  5. PRAVASTATIN [Concomitant]
     Indication: BLOOD CHOLESTEROL INCREASED
     Dosage: ONCE DAILY AT BEDTIME
  6. K [Concomitant]
     Indication: PRODUCT USED FOR UNKNOWN INDICATION
     Dosage: DAILY
  7. METFORMIN [Concomitant]
     Indication: DIABETES MELLITUS
     Dates: start: 201111

REACTIONS (4)
  - Injection site nodule [Recovered/Resolved]
  - Diabetes mellitus [Unknown]
  - Device malfunction [Unknown]
  - Incorrect dose administered [Unknown]
